FAERS Safety Report 4502687-1 (Version None)
Quarter: 2004Q4

REPORT INFORMATION
  Report Type: 
  Country: None (occurrence: None)
  Receive Date: 20041109
  Receipt Date: 20041028
  Transmission Date: 20050328
  Serious: Yes (Hospitalization, Other)
  Sender: FDA-Public Use
  Company Number: HQWYE175829OCT04

PATIENT
  Age: 49 Year
  Sex: Female

DRUGS (5)
  1. ADVIL [Suspect]
     Indication: HEADACHE
     Dosage: THREE TABLETS DAILY, ORAL
     Route: 048
     Dates: start: 20040203, end: 20040204
  2. ADVIL [Suspect]
     Indication: PYREXIA
     Dosage: THREE TABLETS DAILY, ORAL
     Route: 048
     Dates: start: 20040203, end: 20040204
  3. DILTIAZEM [Suspect]
     Indication: HYPERTENSION
     Dates: start: 20040128, end: 20040204
  4. IMODIUM [Suspect]
     Dates: start: 20040203, end: 20040204
  5. IRBESARTAN [Concomitant]

REACTIONS (11)
  - ACUTE GENERALISED EXANTHEMATOUS PUSTULOSIS [None]
  - BLOOD GLUCOSE INCREASED [None]
  - BLOOD PRESSURE INCREASED [None]
  - DERMATITIS EXFOLIATIVE [None]
  - HEART RATE INCREASED [None]
  - HYPOALBUMINAEMIA [None]
  - INFLAMMATION [None]
  - OEDEMA PERIPHERAL [None]
  - PYREXIA [None]
  - RASH [None]
  - WHITE BLOOD CELL COUNT INCREASED [None]
